FAERS Safety Report 17194658 (Version 1)
Quarter: 2019Q4

REPORT INFORMATION
  Report Type: Report from Study
  Country: DE (occurrence: DE)
  Receive Date: 20191224
  Receipt Date: 20191224
  Transmission Date: 20200122
  Serious: Yes (Hospitalization)
  Sender: FDA-Public Use
  Company Number: DE-TEVA-2019-DE-1156319

PATIENT
  Sex: Female
  Weight: 66 kg

DRUGS (2)
  1. FULVESTRANT. [Suspect]
     Active Substance: FULVESTRANT
     Indication: BREAST CANCER METASTATIC
     Dosage: 16.6667 MILLIGRAM DAILY;
     Route: 030
     Dates: start: 20190910
  2. KISQALI [Suspect]
     Active Substance: RIBOCICLIB
     Indication: BREAST CANCER METASTATIC
     Dosage: 600 MG, QD (SCHEME 21 DAYS INTAKE, 7 DAYS BREAK)
     Route: 048
     Dates: start: 20190910

REACTIONS (3)
  - General physical health deterioration [Recovered/Resolved]
  - Headache [Recovered/Resolved]
  - Pruritus [Recovered/Resolved]

NARRATIVE: CASE EVENT DATE: 20190923
